FAERS Safety Report 24146540 (Version 1)
Quarter: 2024Q3

REPORT INFORMATION
  Report Type: Spontaneous
  Country: IN (occurrence: IN)
  Receive Date: 20240729
  Receipt Date: 20240729
  Transmission Date: 20241017
  Serious: Yes (Other)
  Sender: ACCORD
  Company Number: IN-MLMSERVICE-20240711-PI127771-00218-1

PATIENT
  Age: 69 Year
  Sex: Male

DRUGS (8)
  1. METHOTREXATE [Suspect]
     Active Substance: METHOTREXATE
     Indication: Immunosuppressant drug therapy
  2. MYCOPHENOLATE MOFETIL [Suspect]
     Active Substance: MYCOPHENOLATE MOFETIL
     Indication: Immunosuppressant drug therapy
  3. DEFLAZACORT [Suspect]
     Active Substance: DEFLAZACORT
     Indication: Steroid therapy
     Dosage: IN TAPERING DOSE
     Route: 048
  4. RITUXIMAB [Suspect]
     Active Substance: RITUXIMAB
     Indication: Immunosuppressant drug therapy
     Dosage: SINCE LAST 3 YEARS
  5. DEFLAZACORT [Suspect]
     Active Substance: DEFLAZACORT
     Indication: Steroid therapy
     Dosage: IN TAPERING DOSE
     Route: 048
  6. RITUXIMAB [Suspect]
     Active Substance: RITUXIMAB
     Indication: Granulomatosis with polyangiitis
     Dosage: SINCE LAST 3 YEARS
  7. MYCOPHENOLATE MOFETIL [Suspect]
     Active Substance: MYCOPHENOLATE MOFETIL
     Indication: Granulomatosis with polyangiitis
  8. METHOTREXATE [Suspect]
     Active Substance: METHOTREXATE
     Indication: Granulomatosis with polyangiitis

REACTIONS (1)
  - Cytomegalovirus chorioretinitis [Recovered/Resolved]
